FAERS Safety Report 8674463 (Version 2)
Quarter: 2013Q1

REPORT INFORMATION
  Report Type: Spontaneous
  Country: US (occurrence: US)
  Receive Date: 20120720
  Receipt Date: 20130326
  Transmission Date: 20140127
  Serious: Yes (Hospitalization)
  Sender: FDA-Public Use
  Company Number: US-ROCHE-1089087

PATIENT
  Age: 62 Year
  Sex: Female

DRUGS (4)
  1. BONIVA [Suspect]
     Indication: OSTEOPOROSIS
     Route: 048
  2. BONIVA [Suspect]
     Route: 048
     Dates: start: 20080820
  3. BONIVA [Suspect]
     Route: 048
     Dates: start: 20080910
  4. BONIVA [Suspect]
     Route: 048
     Dates: start: 20100504

REACTIONS (1)
  - Femur fracture [Unknown]
